FAERS Safety Report 9002472 (Version 2)
Quarter: 2013Q1

REPORT INFORMATION
  Report Type: Spontaneous
  Country: US (occurrence: US)
  Receive Date: 20130107
  Receipt Date: 20130122
  Transmission Date: 20140127
  Serious: No
  Sender: FDA-Public Use
  Company Number: US-VERTEX PHARMACEUTICALS INC.-2013-000152

PATIENT
  Age: 35 None
  Sex: Male
  Weight: 100 kg

DRUGS (3)
  1. INCIVEK [Suspect]
     Indication: HEPATITIS C
     Dosage: 750 MG, TID
     Route: 048
     Dates: start: 20121208
  2. PEGASYS [Suspect]
     Indication: HEPATITIS C
     Dosage: 180 ?G, QW
     Route: 058
     Dates: start: 20121208
  3. COPEGUS [Suspect]
     Indication: HEPATITIS C
     Dosage: 600 MG, BID
     Dates: start: 20121208

REACTIONS (11)
  - Weight increased [Not Recovered/Not Resolved]
  - Paraesthesia [Recovered/Resolved]
  - Headache [Recovered/Resolved]
  - Insomnia [Not Recovered/Not Resolved]
  - Exercise lack of [Unknown]
  - Mood altered [Not Recovered/Not Resolved]
  - Injection site erythema [Not Recovered/Not Resolved]
  - Skin exfoliation [Recovered/Resolved]
  - Anaemia [Not Recovered/Not Resolved]
  - Haemorrhoids [Not Recovered/Not Resolved]
  - Pruritus [Not Recovered/Not Resolved]
